FAERS Safety Report 6087504-3 (Version None)
Quarter: 2009Q1

REPORT INFORMATION
  Report Type: 
  Country: None (occurrence: None)
  Receive Date: 20090219
  Receipt Date: 20081218
  Transmission Date: 20090719
  Serious: No
  Sender: FDA-Public Use
  Company Number: WAES 0812USA04133

PATIENT
  Age: 76 Year
  Sex: Male

DRUGS (4)
  1. JANUVIA [Suspect]
     Dosage: PO
     Route: 048
     Dates: start: 20080601
  2. ALTACE [Concomitant]
  3. PLAVIX [Concomitant]
  4. METOPROLOL SUCCINATE [Concomitant]

REACTIONS (2)
  - RHINORRHOEA [None]
  - SNEEZING [None]
